FAERS Safety Report 9321021 (Version 1)
Quarter: 2013Q2

REPORT INFORMATION
  Report Type: Spontaneous
  Country: IT (occurrence: None)
  Receive Date: 20130528
  Receipt Date: 20130528
  Transmission Date: 20140414
  Serious: Yes (Hospitalization)
  Sender: FDA-Public Use
  Company Number: 2012AP004415

PATIENT
  Age: 37 Year
  Sex: Female

DRUGS (1)
  1. FERRIPROX [Suspect]
     Indication: HAEMOCHROMATOSIS
     Route: 048
     Dates: start: 20121201, end: 20121210

REACTIONS (3)
  - Neutropenia [None]
  - Leukopenia [None]
  - Hyperpyrexia [None]
